FAERS Safety Report 25049979 (Version 1)
Quarter: 2025Q1

REPORT INFORMATION
  Report Type: Spontaneous
  Country: US (occurrence: US)
  Receive Date: 20250307
  Receipt Date: 20250307
  Transmission Date: 20250409
  Serious: Yes (Other)
  Sender: SAMSUNG BIOEPIS
  Company Number: US-SAMSUNG BIOEPIS-SB-2024-21894

PATIENT

DRUGS (1)
  1. HADLIMA [Suspect]
     Active Substance: ADALIMUMAB-BWWD
     Indication: Crohn^s disease
     Route: 058

REACTIONS (4)
  - Diarrhoea haemorrhagic [Unknown]
  - Defaecation urgency [Unknown]
  - Muscle spasms [Unknown]
  - Product substitution issue [Unknown]
